FAERS Safety Report 7591879-3 (Version None)
Quarter: 2011Q3

REPORT INFORMATION
  Report Type: 
  Country: None (occurrence: None)
  Receive Date: 20110706
  Receipt Date: 20110616
  Transmission Date: 20111222
  Serious: Yes (Hospitalization)
  Sender: FDA-Public Use
  Company Number: US-BAYER-2011-021232

PATIENT
  Age: 31 Year
  Sex: Female
  Weight: 68.027 kg

DRUGS (5)
  1. ONE-A-DAY [MINERALS NOS,VITAMINS NOS] [Concomitant]
  2. YASMIN [Suspect]
     Dosage: UNK
     Dates: start: 20030211, end: 20090527
  3. DROSPIRENONE AND ETHINYL ESTRADIOL [Suspect]
     Dosage: UNK
     Dates: start: 20030211, end: 20090527
  4. LEVOTHYROXINE SODIUM [Concomitant]
     Indication: HYPOTHYROIDISM
     Dosage: UNK
  5. FISH OIL [Concomitant]

REACTIONS (6)
  - CHOLECYSTITIS ACUTE [None]
  - CHEST PAIN [None]
  - CHOLECYSTITIS CHRONIC [None]
  - SCAR [None]
  - EMOTIONAL DISTRESS [None]
  - CHOLELITHIASIS [None]
